FAERS Safety Report 7181543-7 (Version None)
Quarter: 2010Q4

REPORT INFORMATION
  Report Type: 
  Country: None (occurrence: None)
  Receive Date: 20101221
  Receipt Date: 20100426
  Transmission Date: 20110411
  Serious: No
  Sender: FDA-Public Use
  Company Number: US-AMGEN-KDL408361

PATIENT

DRUGS (1)
  1. ENBREL [Suspect]
     Indication: ANKYLOSING SPONDYLITIS
     Dosage: 25 MG, QWK
     Route: 058
     Dates: start: 20080522

REACTIONS (3)
  - BREAST TENDERNESS [None]
  - INCREASED APPETITE [None]
  - MENSTRUAL DISORDER [None]
